FAERS Safety Report 20221424 (Version 1)
Quarter: 2021Q4

REPORT INFORMATION
  Report Type: Spontaneous
  Country: CZ (occurrence: CZ)
  Receive Date: 20211223
  Receipt Date: 20211223
  Transmission Date: 20220303
  Serious: Yes (Other)
  Sender: FDA-Public Use
  Company Number: None

PATIENT
  Age: 77 Year
  Sex: Female
  Weight: 55 kg

DRUGS (20)
  1. REPATHA [Suspect]
     Active Substance: EVOLOCUMAB
     Indication: Product used for unknown indication
     Dosage: THE MEDICINAL PRODUCT WAS ADMINISTERED TWICE. DUE TO ALLERGIC REACTION, THE DRUG WAS WITHDRAWN.
     Route: 058
     Dates: start: 20211019, end: 20211202
  2. TRIMETAZIDINE DIHYDROCHLORIDE [Concomitant]
     Active Substance: TRIMETAZIDINE DIHYDROCHLORIDE
     Dosage: 35 MG TBL. 1-0-1
  3. BISOPROLOL [Concomitant]
     Active Substance: BISOPROLOL
     Dosage: 2,5MG 1-0-0
  4. EUTHYROX [Concomitant]
     Active Substance: LEVOTHYROXINE SODIUM
     Dosage: 100 MCG 1-0-0 MONDAY, WEDNESDAY, FRIDAY
  5. EUTHYROX [Concomitant]
     Active Substance: LEVOTHYROXINE SODIUM
     Dosage: 75 MCG PER OS 1-0-0 TUESDAY, THURSDAY. SATURDAY. SUNDAY
  6. PENTASA [Concomitant]
     Active Substance: MESALAMINE
     Dosage: 2 G 0-0-1
  7. ALVESCO [Concomitant]
     Active Substance: CICLESONIDE
     Dosage: 160 MCG 1-0-1
     Route: 055
  8. DUSPATALIN RETARD [Concomitant]
     Dosage: 200 MG 1-0-1
  9. TELMISARTAN [Concomitant]
     Active Substance: TELMISARTAN
     Dosage: 80MG 0-0-1
  10. PANTOPRAZOLE SODIUM [Concomitant]
     Active Substance: PANTOPRAZOLE SODIUM
     Dosage: 20MG 1-0-0
  11. PANCRELIPASE [Concomitant]
     Active Substance: PANCRELIPASE
     Dosage: 25 000U PER OS 2-1-2-1-2
  12. ATROVENT [Concomitant]
     Active Substance: IPRATROPIUM BROMIDE
     Dosage: 0,2 MG 2-2-2
     Route: 055
  13. XARELTO [Concomitant]
     Active Substance: RIVAROXABAN
     Dosage: XARELTO 20MG 1-0-0
     Route: 048
  14. FORADIL [Concomitant]
     Active Substance: FORMOTEROL FUMARATE
     Dosage: 12 MCG INHALED 1-0-1
     Route: 055
  15. VENTOLIN [Concomitant]
     Active Substance: ALBUTEROL SULFATE
     Dosage: 100 MCG 2-2-2
     Route: 055
  16. ROCALTROL [Concomitant]
     Active Substance: CALCITRIOL
     Dosage: 0,5 UG 1-0-0
  17. MABRON RETARD [Concomitant]
     Indication: Analgesic therapy
     Dosage: 150 MG 1-0-1
  18. POTASSIUM CHLORIDE [Concomitant]
     Active Substance: POTASSIUM CHLORIDE
     Dosage: 1 G 0-1-0
  19. LORATADINE [Concomitant]
     Active Substance: LORATADINE
     Dosage: 10 MG 0-0-1
  20. AMIODARONE HYDROCHLORIDE [Concomitant]
     Active Substance: AMIODARONE HYDROCHLORIDE
     Dosage: 200MG 1-0-1

REACTIONS (3)
  - Dermatitis allergic [Recovered/Resolved]
  - Rash papular [Recovered/Resolved]
  - Rash [Recovered/Resolved]

NARRATIVE: CASE EVENT DATE: 20211019
